FAERS Safety Report 7014293-8 (Version None)
Quarter: 2010Q3

REPORT INFORMATION
  Report Type: 
  Country: None (occurrence: None)
  Receive Date: 20100927
  Receipt Date: 20100920
  Transmission Date: 20110219
  Serious: Yes (Death, Other)
  Sender: FDA-Public Use
  Company Number: US-US-EMD SERONO, INC.-7017113

PATIENT
  Sex: Male
  Weight: 105 kg

DRUGS (1)
  1. NOVANTRONE [Suspect]
     Indication: PROSTATE CANCER METASTATIC
     Dates: start: 20100616, end: 20100616

REACTIONS (4)
  - HEPATIC FUNCTION ABNORMAL [None]
  - OEDEMA PERIPHERAL [None]
  - PROSTATE CANCER METASTATIC [None]
  - RENAL IMPAIRMENT [None]
